FAERS Safety Report 19171543 (Version 2)
Quarter: 2022Q1

REPORT INFORMATION
  Report Type: Spontaneous
  Country: FR (occurrence: FR)
  Receive Date: 20210423
  Receipt Date: 20220106
  Transmission Date: 20220423
  Serious: Yes (Hospitalization)
  Sender: FDA-Public Use
  Company Number: None

PATIENT
  Age: 74 Year
  Sex: Male
  Weight: 92 kg

DRUGS (19)
  1. GENTAMICIN [Suspect]
     Active Substance: GENTAMICIN
     Indication: Erysipelas
     Dosage: DOSAGE: TOTAL 320 MG, SINGLE
     Route: 042
     Dates: start: 20190731, end: 20190731
  2. TAZOBACTAM [Suspect]
     Active Substance: TAZOBACTAM
     Indication: Erysipelas
     Route: 042
     Dates: start: 20190731, end: 20190802
  3. PENICILLIN G SODIUM [Suspect]
     Active Substance: PENICILLIN G SODIUM
     Indication: Erysipelas
     Route: 042
     Dates: start: 20190802, end: 20190809
  4. CLINDAMYCIN [Suspect]
     Active Substance: CLINDAMYCIN
     Indication: Erysipelas
     Dosage: SOLUTION INJECTABLE
     Route: 042
     Dates: start: 20190805, end: 20190809
  5. CLINDAMYCIN [Suspect]
     Active Substance: CLINDAMYCIN
     Indication: Erysipelas
     Dosage: SOLUTION INJECTABLE (300 MG 2/DAY EVERY 8 HOURS)
     Route: 042
     Dates: start: 20190726, end: 20190731
  6. CLINDAMYCIN [Suspect]
     Active Substance: CLINDAMYCIN
     Dosage: 1800 MG, DAILY
     Route: 042
     Dates: start: 20190805, end: 20190809
  7. PIPERACILLIN SODIUM [Suspect]
     Active Substance: PIPERACILLIN SODIUM
     Indication: Erysipelas
     Route: 042
     Dates: start: 20190731, end: 20190802
  8. RAMIPRIL [Concomitant]
     Active Substance: RAMIPRIL
     Indication: Product used for unknown indication
     Dosage: 2.5 MG, 1X/DAY (IN THE EVENING)
  9. LEVEMIR [Concomitant]
     Active Substance: INSULIN DETEMIR
     Indication: Product used for unknown indication
     Dosage: 15 IU, DAILY
  10. FLUINDIONE [Concomitant]
     Active Substance: FLUINDIONE
     Indication: Product used for unknown indication
     Dosage: 20 MG, 1X/DAY (IN THE EVENING)
  11. PENICILLIN V [Concomitant]
     Active Substance: PENICILLIN V
     Indication: Product used for unknown indication
     Dosage: 1 MILLION IU, 2X/DAY (MORNING AND EVENING)
  12. SEVELAMER [Concomitant]
     Active Substance: SEVELAMER
     Indication: Product used for unknown indication
     Dosage: 1 DF, 2X/DAY
  13. REPAGLINIDE [Concomitant]
     Active Substance: REPAGLINIDE
     Indication: Product used for unknown indication
     Dosage: 3X/DAY (2 MG 1-2-2)
  14. ALLOPURINOL [Concomitant]
     Active Substance: ALLOPURINOL
     Indication: Product used for unknown indication
     Dosage: 200 MG, DAILY
  15. VITAMIN D3 [Concomitant]
     Active Substance: CHOLECALCIFEROL
     Indication: Product used for unknown indication
     Dosage: 1 DF, EVERY 3 MONTHS (AMPOULES)
  16. FUROSEMIDE [Concomitant]
     Active Substance: FUROSEMIDE
     Indication: Product used for unknown indication
     Dosage: 500 MG, DAILY (1-1-0.5)
  17. SITAGLIPTIN [Concomitant]
     Active Substance: SITAGLIPTIN
     Indication: Product used for unknown indication
     Dosage: 50 MG, DAILY
  18. BISOPROLOL [Concomitant]
     Active Substance: BISOPROLOL
     Indication: Product used for unknown indication
     Dosage: 2.5 MG, 3X/DAY
  19. POTASSIUM CHLORIDE [Concomitant]
     Active Substance: POTASSIUM CHLORIDE
     Indication: Product used for unknown indication
     Dosage: 1 DF, 3X/DAY

REACTIONS (1)
  - Rash maculo-papular [Recovered/Resolved]

NARRATIVE: CASE EVENT DATE: 20190809
